FAERS Safety Report 14562130 (Version 3)
Quarter: 2018Q2

REPORT INFORMATION
  Report Type: Report from Study
  Country: FR (occurrence: FR)
  Receive Date: 20180222
  Receipt Date: 20180511
  Transmission Date: 20180711
  Serious: Yes (Death, Life-Threatening, Hospitalization, Other)
  Sender: FDA-Public Use
  Company Number: FR-JAZZ-2018-FR-003154

PATIENT
  Age: 17 Year
  Sex: Male
  Weight: 57 kg

DRUGS (1)
  1. DEFITELIO [Suspect]
     Active Substance: DEFIBROTIDE SODIUM
     Indication: VENOOCCLUSIVE DISEASE
     Dosage: 24.66 MG/KG, QD
     Route: 042
     Dates: start: 20160514, end: 20160517

REACTIONS (11)
  - Multiple organ dysfunction syndrome [Fatal]
  - Leukopenia [Unknown]
  - Anaemia [Unknown]
  - Splenomegaly [Unknown]
  - Thrombocytopenia [Unknown]
  - Pericardial effusion [Unknown]
  - Neutropenia [Unknown]
  - Enterobacter sepsis [Unknown]
  - Venoocclusive disease [Fatal]
  - Haematemesis [Unknown]
  - Melaena [Unknown]

NARRATIVE: CASE EVENT DATE: 20160517
